FAERS Safety Report 9321990 (Version 1)
Quarter: 2013Q2

REPORT INFORMATION
  Report Type: Spontaneous
  Country: IT (occurrence: None)
  Receive Date: 20130529
  Receipt Date: 20130529
  Transmission Date: 20140414
  Serious: Yes (Other)
  Sender: FDA-Public Use
  Company Number: 1724804

PATIENT
  Age: 74 Year
  Sex: 0

DRUGS (1)
  1. DOCETAXEL [Suspect]
     Indication: PROSTATE CANCER
     Dosage: 118.3 MG LILLIGRAM(S), CYCLICAL, INTRAVENOUS (NOT OTHERWISE SPECIFIED)
     Route: 042
     Dates: start: 20130514, end: 20130514

REACTIONS (4)
  - Flushing [None]
  - Feeling abnormal [None]
  - Depressed level of consciousness [None]
  - Hypersensitivity [None]
